FAERS Safety Report 4347265-2 (Version None)
Quarter: 2004Q1

REPORT INFORMATION
  Report Type: 
  Country: None (occurrence: None)
  Receive Date: 20040325
  Receipt Date: 20040217
  Transmission Date: 20041129
  Serious: No
  Sender: FDA-Public Use
  Company Number: USA040158011

PATIENT
  Age: 76 Year
  Sex: Female

DRUGS (2)
  1. FORTEO [Suspect]
     Indication: FRACTURED SACRUM
     Dates: start: 20040128
  2. ASPIRIN [Concomitant]

REACTIONS (8)
  - ASTHMA [None]
  - BACK PAIN [None]
  - CARDIAC DISORDER [None]
  - DIFFICULTY IN WALKING [None]
  - INFLUENZA LIKE ILLNESS [None]
  - MUSCLE CRAMP [None]
  - MUSCLE SPASMS [None]
  - MYALGIA [None]
